FAERS Safety Report 6522606-6 (Version None)
Quarter: 2009Q4

REPORT INFORMATION
  Report Type: 
  Country: None (occurrence: None)
  Receive Date: 20091230
  Receipt Date: 20091223
  Transmission Date: 20100525
  Serious: Yes (Hospitalization, Other)
  Sender: FDA-Public Use
  Company Number: PHHY2009CN54523

PATIENT
  Age: 22 Year
  Sex: Male

DRUGS (1)
  1. SEBIVO [Suspect]
     Indication: HEPATITIS B
     Dosage: UNK
     Dates: start: 20080601, end: 20091118

REACTIONS (16)
  - AREFLEXIA [None]
  - ASCITES [None]
  - BLOOD CREATINE PHOSPHOKINASE [None]
  - CHEST DISCOMFORT [None]
  - GAIT DISTURBANCE [None]
  - HEART RATE INCREASED [None]
  - HYPOKALAEMIA [None]
  - MUSCLE ATROPHY [None]
  - MUSCULAR WEAKNESS [None]
  - MYOSITIS [None]
  - NEUROPATHY PERIPHERAL [None]
  - OEDEMA [None]
  - PAIN [None]
  - PAIN IN EXTREMITY [None]
  - PLEURAL EFFUSION [None]
  - SPINAL CORD DISORDER [None]
